FAERS Safety Report 8307287-3 (Version None)
Quarter: 2012Q1

REPORT INFORMATION
  Report Type: 
  Country: None (occurrence: None)
  Receive Date: 20120327
  Receipt Date: 20090908
  Transmission Date: 20120608
  Serious: Yes (Other)
  Sender: FDA-Public Use
  Company Number: PHEH2009US01439

PATIENT
  Age: 86 Year
  Sex: Male

DRUGS (1)
  1. GLEEVEC [Suspect]
     Dosage: 400 MG, QD, ORAL, 200 MG, QD, 100 MG, QD
     Route: 048
     Dates: start: 20080912

REACTIONS (2)
  - EOSINOPHILIA [None]
  - RASH [None]
